FAERS Safety Report 16067572 (Version 2)
Quarter: 2019Q1

REPORT INFORMATION
  Report Type: Spontaneous
  Country: JP (occurrence: JP)
  Receive Date: 20190313
  Receipt Date: 20190318
  Transmission Date: 20190418
  Serious: Yes (Other)
  Sender: FDA-Public Use
  Company Number: JP-ROCHE-2282531

PATIENT
  Age: 3 Decade
  Sex: Female

DRUGS (2)
  1. XOFLUZA [Suspect]
     Active Substance: BALOXAVIR MARBOXIL
     Indication: INFLUENZA
     Route: 048
  2. CALONAL [Suspect]
     Active Substance: ACETAMINOPHEN
     Indication: INFLUENZA
     Route: 065

REACTIONS (2)
  - Melaena [Unknown]
  - Prescribed underdose [Unknown]
